FAERS Safety Report 11126890 (Version 1)
Quarter: 2015Q2

REPORT INFORMATION
  Report Type: Report from Study
  Country: KR (occurrence: KR)
  Receive Date: 20150520
  Receipt Date: 20150520
  Transmission Date: 20150821
  Serious: Yes (Hospitalization)
  Sender: FDA-Public Use
  Company Number: KR-AMGEN-KORCT2015048884

PATIENT
  Age: 51 Year
  Sex: Female
  Weight: 61 kg

DRUGS (25)
  1. DOCETAXEL. [Concomitant]
     Active Substance: DOCETAXEL
     Dosage: 113 MG, UNK
     Route: 042
     Dates: start: 20150502, end: 20150502
  2. CYCLOPHOSPHAMIDE. [Concomitant]
     Active Substance: CYCLOPHOSPHAMIDE
     Dosage: 756 MG, UNK
     Route: 042
     Dates: start: 20150502, end: 20150502
  3. DEXAMETHASONE. [Concomitant]
     Active Substance: DEXAMETHASONE
     Dosage: 3 MG, UNK
     Route: 048
     Dates: start: 20150411, end: 20150412
  4. DEXRAZOXANE. [Concomitant]
     Active Substance: DEXRAZOXANE
     Dosage: 756 MG, UNK
     Route: 042
     Dates: start: 20150411, end: 20150411
  5. APREPITANT. [Concomitant]
     Active Substance: APREPITANT
     Dosage: 80 MG, UNK
     Route: 048
     Dates: start: 20150412, end: 20150413
  6. DEXAMETHASONE. [Concomitant]
     Active Substance: DEXAMETHASONE
     Dosage: 10 MG, UNK
     Route: 042
     Dates: start: 20150411, end: 20150411
  7. TRESTAN                            /00056201/ [Concomitant]
     Dosage: 2CAP,UNK
     Route: 048
     Dates: start: 20150417, end: 20150417
  8. DOCETAXEL. [Concomitant]
     Active Substance: DOCETAXEL
     Dosage: 113 MG, UNK
     Route: 042
     Dates: start: 20150411, end: 20150411
  9. METOCLOPRAMIDE HCL [Concomitant]
     Active Substance: METOCLOPRAMIDE HYDROCHLORIDE
     Dosage: 30 MG, UNK
     Route: 048
     Dates: start: 20150410, end: 20150412
  10. CEFOBACTAM [Concomitant]
     Dosage: 1 G, UNK
     Route: 042
     Dates: start: 20150417, end: 20150418
  11. DOXORUBICIN [Concomitant]
     Active Substance: DOXORUBICIN
     Dosage: 75.6 MG, UNK
     Route: 042
     Dates: start: 20150411, end: 20150411
  12. DIMENHYDRINATE. [Concomitant]
     Active Substance: DIMENHYDRINATE
     Dosage: 150 MG, UNK
     Route: 048
     Dates: start: 20150410, end: 20150412
  13. PALONOSETRON [Concomitant]
     Active Substance: PALONOSETRON
     Dosage: 0.25 MG, UNK
     Route: 042
     Dates: start: 20150411, end: 20150411
  14. TOBRAMYCIN. [Concomitant]
     Active Substance: TOBRAMYCIN
     Dosage: 200 MG, UNK
     Route: 042
     Dates: start: 20150417, end: 20150418
  15. DOXORUBICIN [Concomitant]
     Active Substance: DOXORUBICIN
     Dosage: 75.6 MG, UNK
     Route: 042
     Dates: start: 20150502, end: 20150502
  16. CYCLOPHOSPHAMIDE. [Concomitant]
     Active Substance: CYCLOPHOSPHAMIDE
     Dosage: 756 MG, UNK
     Route: 042
     Dates: start: 20150411, end: 20150411
  17. PALONOSETRON [Concomitant]
     Active Substance: PALONOSETRON
     Dosage: 80 MG, UNK
     Route: 048
     Dates: start: 20150412, end: 20150413
  18. VITAMEDIN                          /00176001/ [Concomitant]
     Dosage: 50 MG, UNK
     Route: 048
     Dates: start: 20150417, end: 20150417
  19. PEGFILGRASTIM [Suspect]
     Active Substance: PEGFILGRASTIM
     Indication: FEBRILE NEUTROPENIA
     Dosage: 6 MG, 1X/3WEEKS
     Route: 058
     Dates: start: 20150412
  20. RANITIDINE [Concomitant]
     Active Substance: RANITIDINE\RANITIDINE HYDROCHLORIDE
     Dosage: 300 MG, UNK
     Route: 048
     Dates: start: 20150410, end: 20150412
  21. DEXAMETHASONE. [Concomitant]
     Active Substance: DEXAMETHASONE
     Dosage: 1.5 MG, UNK
     Route: 048
     Dates: start: 20150410, end: 20150410
  22. APREPITANT. [Concomitant]
     Active Substance: APREPITANT
     Dosage: 125 MG, UNK
     Route: 048
     Dates: start: 20150411, end: 20150411
  23. MEGESTROL ACETATE. [Concomitant]
     Active Substance: MEGESTROL ACETATE
     Dosage: 20 ML, UNK
     Route: 048
     Dates: start: 20150417, end: 20150417
  24. PEGFILGRASTIM [Suspect]
     Active Substance: PEGFILGRASTIM
     Dosage: 6 MG, 1X/3WEEKS
     Route: 058
     Dates: start: 20150503
  25. FILGRASTIM [Concomitant]
     Active Substance: FILGRASTIM
     Dosage: 150 MG, UNK
     Route: 058
     Dates: start: 20150417, end: 20150417

REACTIONS (1)
  - Neutropenia [Recovered/Resolved]

NARRATIVE: CASE EVENT DATE: 20150508
